FAERS Safety Report 8555155-4 (Version None)
Quarter: 2012Q3

REPORT INFORMATION
  Report Type: 
  Country: None (occurrence: None)
  Receive Date: 20120731
  Receipt Date: 20120720
  Transmission Date: 20120928
  Serious: Yes (Hospitalization)
  Sender: FDA-Public Use
  Company Number: FR-FRI-1000037145

PATIENT
  Sex: Female

DRUGS (14)
  1. LOVENOX [Concomitant]
     Dosage: 4000 IU
     Route: 050
     Dates: start: 20120407, end: 20120503
  2. ASPIRIN [Concomitant]
     Dosage: 75 MG
     Route: 048
     Dates: start: 20120416
  3. ADANCOR [Concomitant]
     Dosage: 20 MG
     Route: 048
     Dates: start: 20120418
  4. NEXIUM [Concomitant]
     Dosage: 20 MG
     Route: 048
     Dates: end: 20120515
  5. ACETAMINOPHEN [Concomitant]
     Route: 048
     Dates: start: 20120416
  6. ROCEPHIN [Concomitant]
     Dosage: 1 G
     Route: 042
     Dates: start: 20120407, end: 20120417
  7. PRAVASTATIN SODIUM [Concomitant]
     Dosage: 20 MG
     Route: 048
  8. LEVOTHYROXINE SODIUM [Concomitant]
     Dosage: 125 MCG
     Route: 048
  9. LANTUS [Concomitant]
     Dosage: 18 IU
     Route: 058
     Dates: start: 20120407
  10. ESCITALOPRAM [Suspect]
     Indication: ANXIETY
     Dosage: 10 MG
     Route: 048
     Dates: start: 20120416, end: 20120515
  11. LASIX [Concomitant]
     Dosage: 40 MG
     Route: 048
     Dates: start: 20120416
  12. BISOPROLOL FUMARATE [Concomitant]
     Dosage: 2.5 MG
     Route: 048
  13. TRANSIPEG [Concomitant]
     Dosage: 5.9 MG
     Route: 048
     Dates: start: 20120416
  14. RAMIPRIL [Concomitant]
     Dosage: 2.5 MG
     Route: 048
     Dates: start: 20120416

REACTIONS (1)
  - PANCYTOPENIA [None]
